FAERS Safety Report 8420227-1 (Version None)
Quarter: 2012Q2

REPORT INFORMATION
  Report Type: 
  Country: None (occurrence: None)
  Receive Date: 20120607
  Receipt Date: 20120603
  Transmission Date: 20120825
  Serious: Yes (Other)
  Sender: FDA-Public Use
  Company Number: PE-ABBOTT-12P-127-0940460-00

PATIENT
  Sex: Male

DRUGS (2)
  1. HUMIRA [Suspect]
     Dates: start: 20120301, end: 20120401
  2. HUMIRA [Suspect]
     Indication: PSORIASIS
     Route: 058
     Dates: start: 20111010, end: 20120101

REACTIONS (3)
  - RESPIRATORY TRACT INFECTION [None]
  - ASTHMATIC CRISIS [None]
  - PSORIASIS [None]
